FAERS Safety Report 10540212 (Version 1)
Quarter: 2014Q4

REPORT INFORMATION
  Report Type: Spontaneous
  Country: US (occurrence: None)
  Receive Date: 20141023
  Receipt Date: 20141023
  Transmission Date: 20150529
  Serious: No
  Sender: FDA-Public Use
  Company Number: None

PATIENT
  Age: 70 Year
  Sex: Female
  Weight: 72.58 kg

DRUGS (1)
  1. BROMFENAC [Suspect]
     Active Substance: BROMFENAC\BROMFENAC SODIUM
     Indication: PREMEDICATION
     Dosage: 1 DROP 2 TIMES DAILY TWICE DAILY
     Dates: start: 20141010, end: 20141012

REACTIONS (2)
  - Eye infection [None]
  - Eye discharge [None]

NARRATIVE: CASE EVENT DATE: 20141011
